FAERS Safety Report 18760974 (Version 2)
Quarter: 2021Q1

REPORT INFORMATION
  Report Type: Report from Study
  Country: KR (occurrence: KR)
  Receive Date: 20210120
  Receipt Date: 20210203
  Transmission Date: 20210419
  Serious: Yes (Other)
  Sender: FDA-Public Use
  Company Number: KR-CELLTRION INC.-2021KR000245

PATIENT

DRUGS (1)
  1. REMSIMA [Suspect]
     Active Substance: INFLIXIMAB
     Indication: ANKYLOSING SPONDYLITIS
     Dosage: 3 MG/KG, INTERVAL: 9 WEEKS
     Dates: start: 20190627

REACTIONS (3)
  - Underdose [Unknown]
  - Off label use [Unknown]
  - Corneal degeneration [Not Recovered/Not Resolved]
